FAERS Safety Report 11746195 (Version 1)
Quarter: 2015Q4

REPORT INFORMATION
  Report Type: Spontaneous
  Country: US (occurrence: None)
  Receive Date: 20151116
  Receipt Date: 20151116
  Transmission Date: 20160304
  Serious: Yes (Hospitalization)
  Sender: FDA-Public Use
  Company Number: None

PATIENT
  Age: 24 Year
  Sex: Female
  Weight: 60.33 kg

DRUGS (4)
  1. SYEDA BIRTH CONTROL [Concomitant]
  2. ATIVAN [Concomitant]
     Active Substance: LORAZEPAM
  3. SEROQUEL [Concomitant]
     Active Substance: QUETIAPINE FUMARATE
  4. DIFLUCAN [Suspect]
     Active Substance: FLUCONAZOLE
     Indication: VULVOVAGINAL MYCOTIC INFECTION
     Route: 048

REACTIONS (3)
  - Heart rate increased [None]
  - Electrocardiogram QT prolonged [None]
  - Syncope [None]

NARRATIVE: CASE EVENT DATE: 20151027
